FAERS Safety Report 6738823-6 (Version None)
Quarter: 2010Q2

REPORT INFORMATION
  Report Type: 
  Country: None (occurrence: None)
  Receive Date: 20100524
  Receipt Date: 20100510
  Transmission Date: 20101027
  Serious: Yes (Hospitalization)
  Sender: FDA-Public Use
  Company Number: US-JNJFOC-20100206643

PATIENT
  Age: 64 Year
  Sex: Male
  Weight: 76.66 kg

DRUGS (1)
  1. SUDAFED PE TRIPLE ACTION [Suspect]
     Indication: NASAL CONGESTION
     Route: 048

REACTIONS (6)
  - ATRIAL FIBRILLATION [None]
  - CARDIOMYOPATHY [None]
  - DYSPNOEA [None]
  - FEELING JITTERY [None]
  - HYPOPHAGIA [None]
  - INSOMNIA [None]
